FAERS Safety Report 4666307-8 (Version None)
Quarter: 2005Q2

REPORT INFORMATION
  Report Type: 
  Country: None (occurrence: None)
  Receive Date: 20050517
  Receipt Date: 20050502
  Transmission Date: 20051028
  Serious: Yes (Hospitalization)
  Sender: FDA-Public Use
  Company Number: 2005BI005132

PATIENT
  Age: 54 Year
  Sex: Female

DRUGS (1)
  1. AVONEX [Suspect]
     Indication: MULTIPLE SCLEROSIS
     Dosage: 30 UG; QW; IM
     Route: 030
     Dates: start: 19980101

REACTIONS (5)
  - FEMUR FRACTURE [None]
  - HIP ARTHROPLASTY [None]
  - INJURY [None]
  - KNEE ARTHROPLASTY [None]
  - OSTEOARTHRITIS [None]
